FAERS Safety Report 12627062 (Version 5)
Quarter: 2017Q1

REPORT INFORMATION
  Report Type: Report from Study
  Country: TR (occurrence: TR)
  Receive Date: 20160805
  Receipt Date: 20170315
  Transmission Date: 20170428
  Serious: Yes (Death, Life-Threatening, Hospitalization)
  Sender: FDA-Public Use
  Company Number: TR-CELGENEUS-TUR-2016080662

PATIENT
  Age: 72 Year
  Sex: Male
  Weight: 70 kg

DRUGS (104)
  1. LUMEN [Concomitant]
     Dosage: 12 MILLIGRAM
     Route: 041
     Dates: start: 20160721
  2. EMOJECT [Concomitant]
     Indication: ANTIEMETIC SUPPORTIVE CARE
     Dosage: 120 MILLIGRAM
     Route: 041
     Dates: start: 20160726, end: 20160726
  3. LANTUS SOLOSTAR [Concomitant]
     Active Substance: INSULIN GLARGINE
     Dosage: 10 IU (INTERNATIONAL UNIT)
     Route: 058
     Dates: start: 20160719, end: 20160719
  4. LANTUS SOLOSTAR [Concomitant]
     Active Substance: INSULIN GLARGINE
     Dosage: 4 IU (INTERNATIONAL UNIT)
     Route: 058
     Dates: start: 20160720, end: 20160720
  5. NOVORAPID [Concomitant]
     Active Substance: INSULIN ASPART
     Dosage: 10IU
     Route: 058
     Dates: start: 20160723, end: 20160725
  6. NOVORAPID [Concomitant]
     Active Substance: INSULIN ASPART
     Dosage: 18IU
     Route: 058
     Dates: start: 20160716, end: 20160716
  7. OSTEVIT D3 [Concomitant]
     Indication: HYPOCALCAEMIA
     Dosage: UNKNOWN
     Route: 048
     Dates: start: 20160726
  8. TERNAVIR [Concomitant]
     Indication: ANTIVIRAL PROPHYLAXIS
     Dosage: 245 MILLIGRAM
     Route: 048
     Dates: start: 20160728, end: 20160730
  9. LASIX [Concomitant]
     Active Substance: FUROSEMIDE
     Indication: PLEURAL EFFUSION
     Dosage: 20 MILLIGRAM
     Route: 041
     Dates: start: 20160715, end: 20160719
  10. FLUZAMED [Concomitant]
     Indication: INFECTION PROPHYLAXIS
     Dosage: 200 MILLIGRAM
     Route: 041
     Dates: start: 20160715, end: 20160721
  11. CLEXANE [Concomitant]
     Active Substance: ENOXAPARIN SODIUM
     Indication: THROMBOSIS PROPHYLAXIS
     Dosage: 400/0.4 US/MC
     Route: 058
     Dates: start: 20160718, end: 20160718
  12. PROCTOLOG SUPPLEMENTATION [Concomitant]
     Indication: PROCTALGIA
     Dosage: 1 APPLICATION
     Route: 054
     Dates: start: 20160726, end: 20160726
  13. FLOTIC [Concomitant]
     Dosage: 200 MILLIGRAM
     Route: 041
     Dates: start: 20160731, end: 20160731
  14. KLOROBEN [Concomitant]
     Indication: PROPHYLAXIS
     Dosage: 600 MILLILITER
     Route: 065
     Dates: start: 20160715
  15. FUNGOSTATIN [Concomitant]
     Indication: MUCOSAL INFLAMMATION
     Dosage: 100U/ML
     Route: 048
     Dates: start: 20160715, end: 20160730
  16. GRATELY [Concomitant]
     Dosage: 3/3MG/ML
     Route: 041
     Dates: start: 20160726, end: 20160727
  17. ENOX [Concomitant]
     Indication: THROMBOSIS PROPHYLAXIS
     Dosage: 40/0.4 MILLIGRAM/ML
     Route: 058
     Dates: start: 20160718, end: 20160731
  18. NOVORAPID [Concomitant]
     Active Substance: INSULIN ASPART
     Dosage: 8IU
     Route: 058
     Dates: start: 20160722, end: 20160722
  19. NOVORAPID [Concomitant]
     Active Substance: INSULIN ASPART
     Dosage: 6IU
     Route: 058
     Dates: start: 20160801
  20. TRADOLEX [Concomitant]
     Indication: PELVIC PAIN
  21. BACTRIM [Concomitant]
     Active Substance: SULFAMETHOXAZOLE\TRIMETHOPRIM
     Indication: PNEUMONIA
     Dosage: 400/80 MG/MG
     Route: 058
     Dates: start: 20160731, end: 20160731
  22. CONTRAMAL [Concomitant]
     Active Substance: TRAMADOL HYDROCHLORIDE
     Indication: PAIN
     Dosage: 50MG
     Route: 058
     Dates: start: 20160718, end: 20160718
  23. CALCIUMAX [Concomitant]
     Indication: ALLERGY PROPHYLAXIS
     Dosage: 2ML
     Route: 041
     Dates: start: 20160728, end: 20160728
  24. CALCIUM PICKEN [Concomitant]
     Dosage: 5 MILLILITER
     Route: 041
     Dates: start: 20160731
  25. CIPRO [Concomitant]
     Active Substance: CIPROFLOXACIN HYDROCHLORIDE
     Indication: PNEUMONIA
     Dosage: 1000 MILLIGRAM
     Route: 041
     Dates: start: 20160718, end: 20160718
  26. FLOTIC [Concomitant]
     Indication: PNEUMONIA
     Dosage: 400 MILLIGRAM
     Route: 041
     Dates: start: 20160715, end: 20160717
  27. PAROL [Concomitant]
     Active Substance: ACETAMINOPHEN
     Indication: ANXIETY
     Dosage: 25MG
     Route: 048
     Dates: start: 20160722, end: 20160722
  28. STABLON [Concomitant]
     Active Substance: TIANEPTINE
     Indication: ANXIETY
     Dosage: 25 MILLIGRAM
     Route: 048
     Dates: start: 20160714, end: 20160731
  29. LANTUS SOLOSTAR [Concomitant]
     Active Substance: INSULIN GLARGINE
     Dosage: 14 IU (INTERNATIONAL UNIT)
     Route: 058
     Dates: start: 20160723, end: 20160727
  30. LANTUS SOLOSTAR [Concomitant]
     Active Substance: INSULIN GLARGINE
     Dosage: 18 IU (INTERNATIONAL UNIT)
     Route: 058
     Dates: start: 20160731, end: 20160731
  31. URIKOLIZ [Concomitant]
     Active Substance: ALLOPURINOL
     Indication: PROPHYLAXIS
     Dosage: 300 MILLIGRAM
     Route: 048
     Dates: start: 20160725
  32. PULCET [Concomitant]
     Active Substance: PANTOPRAZOLE SODIUM
     Dosage: 8 MILLIGRAM
     Route: 041
     Dates: start: 20160731, end: 20160731
  33. TARKA [Concomitant]
     Active Substance: TRANDOLAPRIL\VERAPAMIL HYDROCHLORIDE
     Indication: HYPERTENSION
     Dosage: 180 MILLIGRAM
     Route: 048
     Dates: end: 20160717
  34. DECOL [Concomitant]
     Indication: NAUSEA
     Dosage: 0.5 MILLILITER
     Route: 058
     Dates: start: 20160718, end: 20160718
  35. AVIL [Concomitant]
     Active Substance: PHENIRAMINE
     Indication: DRUG HYPERSENSITIVITY
     Dosage: 2ML
     Route: 041
     Dates: start: 20160728, end: 20160728
  36. AVIL [Concomitant]
     Active Substance: PHENIRAMINE
     Dosage: 2 MILLILITER
     Route: 041
     Dates: start: 20160728, end: 20160729
  37. HUMULIN RETROL [Concomitant]
     Indication: DIABETES MELLITUS
     Dosage: 4ML
     Route: 041
     Dates: start: 20160715, end: 20160716
  38. DUPHALAC [Concomitant]
     Active Substance: LACTULOSE
     Indication: CONSTIPATION
     Dosage: 30 MILLILITER
     Route: 041
     Dates: start: 20160726, end: 20160727
  39. CALCIUM PICKEN [Concomitant]
     Indication: HYPOCALCAEMIA
     Dosage: 5 MILLILITER
     Route: 041
     Dates: start: 20160725, end: 20160725
  40. PAROL [Concomitant]
     Active Substance: ACETAMINOPHEN
     Indication: DRUG HYPERSENSITIVITY
     Dosage: 10MG
     Route: 041
     Dates: start: 20160731, end: 20160731
  41. DORMICUM (NITRAZEPAM) [Concomitant]
     Active Substance: NITRAZEPAM
     Indication: DELIRIUM
     Dosage: 2 MG/H
     Route: 041
     Dates: start: 20160731
  42. CC-5013 [Suspect]
     Active Substance: LENALIDOMIDE
     Indication: DIFFUSE LARGE B-CELL LYMPHOMA
     Dosage: 15 MILLIGRAM
     Route: 048
     Dates: start: 20160728, end: 20160731
  43. RITUXIMAB [Suspect]
     Active Substance: RITUXIMAB
     Indication: DIFFUSE LARGE B-CELL LYMPHOMA
     Dosage: 375 MILLIGRAM
     Route: 041
     Dates: start: 20160729
  44. DOXORUBICIN [Suspect]
     Active Substance: DOXORUBICIN
     Indication: DIFFUSE LARGE B-CELL LYMPHOMA
     Dosage: 50 MILLIGRAM
     Route: 041
     Dates: start: 20160729
  45. PREDNISONE. [Suspect]
     Active Substance: PREDNISONE
     Indication: DIFFUSE LARGE B-CELL LYMPHOMA
     Dosage: 100 MILLIGRAM
     Route: 048
     Dates: start: 20160728
  46. EMOJECT [Concomitant]
     Indication: NAUSEA
     Route: 041
     Dates: start: 20160730, end: 20160730
  47. NOVORAPID [Concomitant]
     Active Substance: INSULIN ASPART
     Dosage: 8 IU (INTERNATIONAL UNIT)
     Route: 058
     Dates: start: 20160720, end: 20160720
  48. NOVORAPID [Concomitant]
     Active Substance: INSULIN ASPART
     Dosage: 10IU
     Route: 058
     Dates: start: 20160727, end: 20160727
  49. NOVORAPID [Concomitant]
     Active Substance: INSULIN ASPART
     Dosage: 15IU
     Route: 058
     Dates: start: 20160730, end: 20160730
  50. NOVORAPID [Concomitant]
     Active Substance: INSULIN ASPART
     Dosage: 26IU
     Route: 058
     Dates: start: 20160719, end: 20160719
  51. TRADOLEX [Concomitant]
     Indication: ABDOMINAL PAIN
     Dosage: 100 MILLIGRAM
     Route: 041
     Dates: start: 20160724, end: 20160731
  52. KEMOPRIM [Concomitant]
     Indication: ANTIFUNGAL PROPHYLAXIS
     Dosage: 800/160MG
     Route: 048
     Dates: start: 20160723, end: 20160725
  53. METHYLPREDNISOLONE. [Concomitant]
     Active Substance: METHYLPREDNISOLONE
     Indication: DRUG HYPERSENSITIVITY
     Dosage: 20MG
     Route: 041
     Dates: start: 20160728, end: 20160728
  54. KYTRIL [Concomitant]
     Active Substance: GRANISETRON HYDROCHLORIDE
     Indication: NAUSEA
     Dosage: 4 MILLIGRAM
     Route: 041
     Dates: start: 20160715, end: 20160716
  55. BACTRIM [Concomitant]
     Active Substance: SULFAMETHOXAZOLE\TRIMETHOPRIM
     Dosage: 800/160 MG/MG
     Route: 058
     Dates: start: 20160728, end: 20160728
  56. DECORT [Concomitant]
     Indication: DRUG HYPERSENSITIVITY
     Dosage: 8MG
     Route: 041
     Dates: start: 20160728, end: 20160728
  57. ENEMA (SODIUM PHOSPHATE, DIBASIC\SODIUM PHOSPHATE, MONOBASIC) [Concomitant]
     Active Substance: SODIUM PHOSPHATE, DIBASIC\SODIUM PHOSPHATE, MONOBASIC
     Indication: CONSTIPATION
     Dosage: 135 MILLILITER
     Route: 054
     Dates: start: 20160727, end: 20160727
  58. PAROL [Concomitant]
     Active Substance: ACETAMINOPHEN
     Indication: PYREXIA
     Dosage: 10MG
     Route: 041
     Dates: start: 20160731, end: 20160731
  59. CYCLOPHOSPHAMIDE. [Suspect]
     Active Substance: CYCLOPHOSPHAMIDE
     Indication: DIFFUSE LARGE B-CELL LYMPHOMA
     Dosage: 1750 MILLIGRAM
     Route: 041
     Dates: start: 20160729
  60. GRATELY [Concomitant]
     Dosage: 3/3MG/ML
     Route: 041
     Dates: start: 20160716, end: 20160722
  61. LANTUS SOLOSTAR [Concomitant]
     Active Substance: INSULIN GLARGINE
     Dosage: 10 IU (INTERNATIONAL UNIT)
     Route: 058
     Dates: start: 20160721, end: 20160722
  62. LANTUS SOLOSTAR [Concomitant]
     Active Substance: INSULIN GLARGINE
     Dosage: 20 IU (INTERNATIONAL UNIT)
     Route: 058
     Dates: start: 20160730, end: 20160730
  63. NOVORAPID [Concomitant]
     Active Substance: INSULIN ASPART
     Indication: DIABETES MELLITUS
     Dosage: 300 MILLIGRAM/MILLILITERS
     Route: 058
     Dates: start: 20160719
  64. URIKOLIZ [Concomitant]
     Active Substance: ALLOPURINOL
     Dosage: 300 MILLIGRAM
     Route: 048
     Dates: start: 20160723, end: 20160731
  65. KEMOPRIM [Concomitant]
     Dosage: 800/160MG
     Route: 048
     Dates: start: 20160731
  66. OSTEVIT D3 [Concomitant]
     Dosage: 1500 MILLIGRAM
     Route: 048
     Dates: start: 20160725, end: 20160730
  67. LASIX [Concomitant]
     Active Substance: FUROSEMIDE
     Dosage: 20/2 MG/ML
     Route: 041
     Dates: start: 20160731, end: 20160731
  68. METPAMID [Concomitant]
     Active Substance: METOCLOPRAMIDE
     Dosage: 10 MILLIGRAM
     Route: 041
     Dates: start: 20160724, end: 20160724
  69. ATORAX [Concomitant]
     Indication: DRUG HYPERSENSITIVITY
     Dosage: 8MG
     Route: 041
     Dates: start: 20160728, end: 20160728
  70. KLOROBEN [Concomitant]
     Dosage: 30 MILLIGRAM
     Route: 065
     Dates: start: 20160715, end: 20160730
  71. LANTUS SOLOSTAR [Concomitant]
     Active Substance: INSULIN GLARGINE
     Indication: DIABETES MELLITUS
     Dosage: 100 MILLIGRAM/MILLILITERS
     Route: 058
     Dates: start: 20160719
  72. LANTUS SOLOSTAR [Concomitant]
     Active Substance: INSULIN GLARGINE
     Dosage: 14 IU (INTERNATIONAL UNIT)
     Route: 058
     Dates: start: 20160729, end: 20160729
  73. NOVORAPID [Concomitant]
     Active Substance: INSULIN ASPART
     Dosage: 16IU
     Route: 058
     Dates: start: 20160731, end: 20160731
  74. VALTREX [Concomitant]
     Active Substance: VALACYCLOVIR HYDROCHLORIDE
     Indication: ANTIVIRAL PROPHYLAXIS
     Dosage: 500 MILLIGRAM
     Route: 048
     Dates: start: 20160725, end: 20160729
  75. NORODOL [Concomitant]
     Dosage: 5MG/ML
     Route: 048
     Dates: start: 20160728, end: 20160730
  76. PULCET [Concomitant]
     Active Substance: PANTOPRAZOLE SODIUM
     Indication: GASTRITIS PROPHYLAXIS
     Dosage: 40 MILLIGRAM
     Route: 048
     Dates: start: 20160714, end: 20160715
  77. BACTRIM [Concomitant]
     Active Substance: SULFAMETHOXAZOLE\TRIMETHOPRIM
     Indication: PNEUMOCYSTIS JIROVECII PNEUMONIA
     Dosage: 800/160 MG/MG
     Route: 058
     Dates: start: 20160725, end: 20160725
  78. ANESTOL [Concomitant]
     Indication: PROCTALGIA
     Dosage: 20 MILLILITER
     Route: 061
     Dates: start: 20160726, end: 20160726
  79. ZOLAMID [Concomitant]
     Indication: DELIRIUM
     Dosage: 3.75 MILLIGRAM
     Route: 041
     Dates: start: 20160731
  80. GRATELY [Concomitant]
     Indication: NAUSEA
     Dosage: 3/3MG/ML
     Route: 041
     Dates: start: 20160724, end: 20160724
  81. ESOBLOK [Concomitant]
     Indication: PROPHYLAXIS AGAINST GASTROINTESTINAL ULCER
     Dosage: 80 MILLIGRAM
     Route: 041
     Dates: start: 20160715
  82. NOVORAPID [Concomitant]
     Active Substance: INSULIN ASPART
     Dosage: 6 MS
     Route: 058
     Dates: start: 20160718, end: 20160718
  83. NOVORAPID [Concomitant]
     Active Substance: INSULIN ASPART
     Dosage: 10IU
     Route: 058
     Dates: start: 20160726, end: 20160726
  84. NOVORAPID [Concomitant]
     Active Substance: INSULIN ASPART
     Dosage: 10IU
     Route: 058
     Dates: start: 20160730, end: 20160730
  85. KEMOPRIM [Concomitant]
     Dosage: 800/160MG
     Route: 048
     Dates: start: 20160729, end: 20160729
  86. GLIFIX [Concomitant]
     Indication: DIABETES MELLITUS
     Dosage: 30 MILLIGRAM
     Route: 048
     Dates: start: 20160504, end: 20160728
  87. MAGNESIE CALORIE [Concomitant]
     Indication: CONSTIPATION
     Dosage: 400 MILLIGRAM
     Route: 048
     Dates: start: 20160725, end: 20160726
  88. HUMULIN RETROL [Concomitant]
     Dosage: 13IU
     Route: 041
     Dates: start: 20160731, end: 20160731
  89. VINCRISTINE [Suspect]
     Active Substance: VINCRISTINE
     Indication: DIFFUSE LARGE B-CELL LYMPHOMA
     Dosage: 1.4 MILLIGRAM
     Route: 041
     Dates: start: 20160729
  90. VASTAREL [Concomitant]
     Active Substance: TRIMETAZIDINE DIHYDROCHLORIDE
     Indication: HYPERTENSION
     Dosage: 40 MILLIGRAM
     Route: 048
     Dates: start: 20160715
  91. LUMEN [Concomitant]
     Indication: CANDIDA INFECTION
     Dosage: 2/50MG/ML
     Route: 041
     Dates: start: 20160715
  92. GRATELY [Concomitant]
     Indication: ANTIEMETIC SUPPORTIVE CARE
     Dosage: 3/3MG/ML
     Route: 041
     Dates: start: 20160715
  93. GRATELY [Concomitant]
     Dosage: 3/3MG/ML
     Route: 041
     Dates: start: 20160730, end: 20160730
  94. NOVORAPID [Concomitant]
     Active Substance: INSULIN ASPART
     Dosage: 4 IU (INTERNATIONAL UNIT)
     Route: 058
     Dates: start: 20160720, end: 20160720
  95. NOVORAPID [Concomitant]
     Active Substance: INSULIN ASPART
     Dosage: 16 IU (INTERNATIONAL UNIT)
     Route: 058
     Dates: start: 20160721, end: 20160721
  96. URIKOLIZ [Concomitant]
     Active Substance: ALLOPURINOL
     Dosage: 600 MILLIGRAM
     Route: 048
     Dates: start: 20160716, end: 20160716
  97. ATIVAN EXPEDIT [Concomitant]
     Indication: SLEEP DISORDER
     Dosage: 1 MILLIGRAM
     Route: 048
     Dates: start: 20160723, end: 20160730
  98. NORODOL [Concomitant]
     Indication: DELIRIUM
     Dosage: 5/1MG/ML
     Route: 048
     Dates: start: 20160730
  99. ALDACTONE [Concomitant]
     Active Substance: SPIRONOLACTONE
     Indication: ASCITES
     Dosage: 25 MILLIGRAM
     Route: 041
     Dates: start: 20160715, end: 20160728
  100. METPAMID [Concomitant]
     Active Substance: METOCLOPRAMIDE
     Indication: NAUSEA
     Dosage: 30 MILLIGRAM
     Route: 041
     Dates: start: 20160715, end: 20160722
  101. DEKOL [Concomitant]
     Indication: NAUSEA
     Dosage: 5 MILLILITER
     Route: 041
     Dates: start: 20160724, end: 20160724
  102. CIPRASID [Concomitant]
     Indication: PNEUMONIA
     Dosage: 1000 MILLIGRAM
     Route: 048
     Dates: start: 20160718, end: 20160719
  103. FLOTIC [Concomitant]
     Dosage: 400 MILLIGRAM
     Route: 041
     Dates: start: 20160719, end: 20160725
  104. S-OLICLINOMEL [Concomitant]
     Indication: NAUSEA
     Dosage: 1500ML
     Route: 041
     Dates: start: 20160714, end: 20160731

REACTIONS (5)
  - Acute kidney injury [Not Recovered/Not Resolved]
  - Sepsis [Not Recovered/Not Resolved]
  - Tumour lysis syndrome [Fatal]
  - Diffuse large B-cell lymphoma [Fatal]
  - Urinary retention [Not Recovered/Not Resolved]

NARRATIVE: CASE EVENT DATE: 20160730
